FAERS Safety Report 9893331 (Version 1)
Quarter: 2014Q1

REPORT INFORMATION
  Report Type: Spontaneous
  Country: FR (occurrence: FR)
  Receive Date: 20140213
  Receipt Date: 20140213
  Transmission Date: 20141002
  Serious: Yes (Hospitalization)
  Sender: FDA-Public Use
  Company Number: FR-JNJFOC-20140206024

PATIENT
  Age: 84 Year
  Sex: Male

DRUGS (12)
  1. XARELTO [Suspect]
     Indication: CEREBROVASCULAR ACCIDENT PROPHYLAXIS
     Route: 048
     Dates: start: 201304, end: 201305
  2. XARELTO [Suspect]
     Indication: ATRIAL FIBRILLATION
     Route: 048
     Dates: start: 201304, end: 201305
  3. AMIODARONE [Suspect]
     Indication: PRODUCT USED FOR UNKNOWN INDICATION
     Route: 048
     Dates: start: 201304
  4. LERCANIDIPINE HYDROCHLORIDE [Concomitant]
     Indication: HYPERTENSION
     Route: 048
  5. TAHOR [Concomitant]
     Route: 048
  6. INEXIUM [Concomitant]
     Route: 048
  7. ZOLOFT [Concomitant]
     Route: 048
  8. BROMAZEPAM [Concomitant]
     Route: 048
  9. IXPRIM [Concomitant]
     Route: 048
  10. PIASCLEDINE [Concomitant]
     Route: 048
  11. DOLIPRANE [Concomitant]
     Route: 048
  12. ROCALTROL [Concomitant]
     Route: 048

REACTIONS (1)
  - Renal failure [Not Recovered/Not Resolved]
